FAERS Safety Report 10649924 (Version 2)
Quarter: 2014Q4

REPORT INFORMATION
  Report Type: Spontaneous
  Country: JP (occurrence: JP)
  Receive Date: 20141212
  Receipt Date: 20141218
  Transmission Date: 20150529
  Serious: Yes (Death)
  Sender: FDA-Public Use
  Company Number: JP-ALLERGAN-1425619US

PATIENT
  Age: 89 Year
  Sex: Female

DRUGS (5)
  1. ALEVIATIN [Concomitant]
     Active Substance: PHENYTOIN SODIUM
     Indication: EPILEPSY
     Dosage: 100 MG, QD
  2. BOTOX [Suspect]
     Active Substance: ONABOTULINUMTOXINA
     Indication: CONVULSIONS LOCAL
     Dosage: 240 UNITS, SINGLE
     Route: 030
     Dates: start: 20140816, end: 20140816
  3. BOTOX [Suspect]
     Active Substance: ONABOTULINUMTOXINA
     Indication: MUSCLE SPASMS
     Dosage: 300 UNITS, SINGLE
     Route: 030
     Dates: start: 20141129, end: 20141129
  4. SODIUM PICOSULFATE [Concomitant]
     Active Substance: SODIUM PICOSULFATE
     Indication: CONSTIPATION
     Dosage: UNK, PRN
  5. LIMARMONE [Concomitant]
     Indication: ARTERIOSCLEROSIS
     Dosage: 10 ?G, BID

REACTIONS (2)
  - Marasmus [Fatal]
  - Off label use [Unknown]

NARRATIVE: CASE EVENT DATE: 20141130
